FAERS Safety Report 6303762-1 (Version None)
Quarter: 2009Q3

REPORT INFORMATION
  Report Type: 
  Country: None (occurrence: None)
  Receive Date: 20090810
  Receipt Date: 20090728
  Transmission Date: 20100115
  Serious: Yes (Other)
  Sender: FDA-Public Use
  Company Number: CA-GENENTECH-287683

PATIENT
  Age: 47 Year
  Sex: Male

DRUGS (1)
  1. AVASTIN [Suspect]
     Indication: GLIOBLASTOMA
     Dosage: UNK
     Route: 042
     Dates: start: 20080701

REACTIONS (1)
  - OSTEONECROSIS [None]
